FAERS Safety Report 6428704-X (Version None)
Quarter: 2009Q4

REPORT INFORMATION
  Report Type: 
  Country: None (occurrence: None)
  Receive Date: 20091104
  Receipt Date: 20091104
  Transmission Date: 20100525
  Serious: Yes (Other)
  Sender: FDA-Public Use
  Company Number: None

PATIENT
  Age: 79 Year
  Sex: Male
  Weight: 65 kg

DRUGS (2)
  1. ENOXAPARIN [Suspect]
     Indication: DEEP VEIN THROMBOSIS
     Dosage: 100 MG EVERY DAY SQ
     Route: 058
     Dates: start: 20071102
  2. BEVACIZUMAB [Suspect]
     Indication: RECTAL CANCER STAGE IV
     Dosage: 350 MG OTHER IV
     Route: 042
     Dates: start: 20071102

REACTIONS (1)
  - HAEMATURIA [None]
